FAERS Safety Report 5485119-9 (Version None)
Quarter: 2007Q4

REPORT INFORMATION
  Report Type: 
  Country: None (occurrence: None)
  Receive Date: 20071010
  Receipt Date: 20071002
  Transmission Date: 20080405
  Serious: Yes (Hospitalization)
  Sender: FDA-Public Use
  Company Number: 2007BI016764

PATIENT
  Age: 45 Year
  Sex: Female

DRUGS (5)
  1. NATALIZUMAB [Suspect]
     Indication: MULTIPLE SCLEROSIS
     Dosage: 300 MG;QM;IV
     Route: 042
     Dates: start: 20070607, end: 20070807
  2. AVONEX [Concomitant]
  3. KLONOPIN [Concomitant]
  4. KEPPRA [Concomitant]
  5. TOPAMAX [Concomitant]

REACTIONS (4)
  - CHEST PAIN [None]
  - CONVERSION DISORDER [None]
  - HYPERSENSITIVITY [None]
  - INFUSION RELATED REACTION [None]
